FAERS Safety Report 23366574 (Version 7)
Quarter: 2024Q4

REPORT INFORMATION
  Report Type: Report from Study
  Country: KR (occurrence: KR)
  Receive Date: 20240104
  Receipt Date: 20241128
  Transmission Date: 20250114
  Serious: Yes (Other)
  Sender: TAKEDA
  Company Number: KR-TAKEDA-2024TUS000350

PATIENT
  Sex: Female

DRUGS (12)
  1. BRIGATINIB [Suspect]
     Active Substance: BRIGATINIB
     Indication: Non-small cell lung cancer
     Dosage: 90 MILLIGRAM, QD
     Dates: start: 20220818, end: 20220901
  2. GASTER [Concomitant]
     Active Substance: FAMOTIDINE
     Indication: Prophylaxis
     Dosage: 40 MILLIGRAM
  3. METOCLOPRAMIDE HYDROCHLORIDE [Concomitant]
     Active Substance: METOCLOPRAMIDE HYDROCHLORIDE
     Indication: Prophylaxis of nausea and vomiting
     Dosage: 15 MILLIGRAM
     Dates: start: 20220818, end: 20231206
  4. Q pam [Concomitant]
     Indication: Seizure
     Dosage: 2000 MILLIGRAM
     Dates: start: 20220820, end: 20220820
  5. KEPPRA [Concomitant]
     Active Substance: LEVETIRACETAM
     Indication: Seizure
     Dosage: 1000 MILLIGRAM
  6. DEXAMETHASONE [Concomitant]
     Active Substance: DEXAMETHASONE
     Indication: Seizure
     Dosage: 4 MILLIGRAM
     Dates: start: 20220822, end: 20220920
  7. HYDROCORTISONE SODIUM SUCCINATE [Concomitant]
     Active Substance: HYDROCORTISONE SODIUM SUCCINATE
     Indication: Seizure
     Dosage: 100 MILLIGRAM
     Dates: start: 20220822, end: 20220822
  8. MANNITOL [Concomitant]
     Active Substance: MANNITOL
     Indication: Seizure
     Dosage: 400 MILLILITER
     Dates: start: 20220825, end: 20220920
  9. TRAMADOL HYDROCHLORIDE [Concomitant]
     Active Substance: TRAMADOL HYDROCHLORIDE
     Indication: Pain prophylaxis
     Dosage: 100 MILLIGRAM
     Dates: start: 20220820, end: 20221102
  10. BINICAPIN [Concomitant]
     Indication: Hypertension
     Dosage: 2 MILLIGRAM
     Dates: start: 20220820, end: 20220826
  11. COMBIFLEX PERI [Concomitant]
     Indication: Prophylaxis
     Dosage: 1100 MILLILITER
     Dates: start: 20220820, end: 20220826
  12. AMLODIPINE OROTATE [Concomitant]
     Active Substance: AMLODIPINE OROTATE
     Indication: Hypertension
     Dosage: 5 MILLIGRAM

REACTIONS (1)
  - Drug-induced liver injury [Recovered/Resolved]

NARRATIVE: CASE EVENT DATE: 20220901
